FAERS Safety Report 22601513 (Version 1)
Quarter: 2023Q2

REPORT INFORMATION
  Report Type: Spontaneous
  Country: None (occurrence: US)
  Receive Date: 20230614
  Receipt Date: 20230614
  Transmission Date: 20230722
  Serious: No
  Sender: FDA-Public Use
  Company Number: US-Ascend Therapeutics US, LLC-2142702

PATIENT

DRUGS (3)
  1. ESTROGEL [Suspect]
     Active Substance: ESTRADIOL
     Indication: Product used for unknown indication
     Route: 065
  2. ESTROGEL [Suspect]
     Active Substance: ESTRADIOL
     Route: 065
  3. ESTROGEL [Suspect]
     Active Substance: ESTRADIOL
     Route: 065
     Dates: start: 2023

REACTIONS (2)
  - Therapeutic product effect decreased [None]
  - Product quality issue [None]
